FAERS Safety Report 6092320-2 (Version None)
Quarter: 2009Q1

REPORT INFORMATION
  Report Type: 
  Country: None (occurrence: None)
  Receive Date: 20090223
  Receipt Date: 20090223
  Transmission Date: 20090719
  Serious: No
  Sender: FDA-Public Use
  Company Number: None

PATIENT
  Sex: Male
  Weight: 81.3 kg

DRUGS (2)
  1. TEMOZOLOMIDE [Suspect]
     Dosage: 6450 MG
  2. DEXAMETHASONE [Concomitant]

REACTIONS (1)
  - LYMPHOPENIA [None]
